FAERS Safety Report 9619548 (Version 1)
Quarter: 2013Q4

REPORT INFORMATION
  Report Type: Spontaneous
  Country: FR (occurrence: FR)
  Receive Date: 20131014
  Receipt Date: 20131014
  Transmission Date: 20140711
  Serious: Yes (Life-Threatening, Hospitalization, Other)
  Sender: FDA-Public Use
  Company Number: FR-PFIZER INC-2013290004

PATIENT
  Age: 21 Year
  Sex: Female

DRUGS (5)
  1. XANAX [Suspect]
     Dosage: 12 MG, SINGLE
     Route: 048
     Dates: start: 20130916
  2. THERALENE [Suspect]
     Dosage: 135 MG, SINGLE
     Route: 048
     Dates: start: 20130916
  3. RISPERDAL [Suspect]
     Dosage: 20 MG, SINGLE
     Route: 048
     Dates: start: 20130916
  4. SEROPLEX [Suspect]
     Dosage: 420 MG, SINGLE
     Route: 048
     Dates: start: 20130916
  5. IMOVANE [Suspect]
     Dosage: 22.5 MG, SINGLE
     Route: 048
     Dates: start: 20130916

REACTIONS (9)
  - Cardiac disorder [Recovered/Resolved]
  - Somnolence [Recovered/Resolved]
  - Hypotonia [Recovered/Resolved]
  - Toxicity to various agents [Unknown]
  - Overdose [Unknown]
  - Sinoatrial block [Unknown]
  - Hypotension [Unknown]
  - Left ventricular dysfunction [Unknown]
  - Bradycardia [Unknown]
